FAERS Safety Report 8855778 (Version 1)
Quarter: 2012Q4

REPORT INFORMATION
  Report Type: 
  Country: GB (occurrence: GB)
  Receive Date: 20121023
  Receipt Date: 20121023
  Transmission Date: 20130627
  Serious: Yes (Hospitalization)
  Sender: FDA-Public Use
  Company Number: PHFR2002GB06129

PATIENT
  Sex: Male

DRUGS (1)
  1. CLOZARIL [Suspect]
     Route: 048
     Dates: start: 20010701, end: 20020302

REACTIONS (5)
  - Oesophageal carcinoma [Unknown]
  - Dysphagia [Unknown]
  - Haemorrhage [Unknown]
  - Vomiting [Unknown]
  - Adverse event [Unknown]
